FAERS Safety Report 12288001 (Version 1)
Quarter: 2016Q2

REPORT INFORMATION
  Report Type: Spontaneous
  Country: DE (occurrence: DE)
  Receive Date: 20160420
  Receipt Date: 20160420
  Transmission Date: 20160815
  Serious: Yes (Death)
  Sender: FDA-Public Use
  Company Number: DE-TEVA-652415GER

PATIENT
  Age: 75 Year
  Sex: Female

DRUGS (8)
  1. OXAZEPAM 10MG [Suspect]
     Active Substance: OXAZEPAM
     Indication: PSYCHOTIC DISORDER
  2. OXAZEPAM 10MG [Suspect]
     Active Substance: OXAZEPAM
     Indication: INSOMNIA
  3. OXAZEPAM 10MG [Suspect]
     Active Substance: OXAZEPAM
     Indication: ANXIETY
  4. CIPROFLOXACIN. [Suspect]
     Active Substance: CIPROFLOXACIN
     Indication: URINARY TRACT INFECTION
     Dosage: 500 MILLIGRAM DAILY;
     Route: 048
     Dates: start: 20160219, end: 20160222
  5. TRANSTEC 35 UG/H [Concomitant]
     Indication: MUSCULOSKELETAL DISCOMFORT
     Route: 062
     Dates: start: 201410
  6. PAROXETIN [Suspect]
     Active Substance: PAROXETINE HYDROCHLORIDE
     Indication: DEPRESSION
     Route: 048
     Dates: start: 20160211
  7. PAROXETIN [Suspect]
     Active Substance: PAROXETINE HYDROCHLORIDE
     Indication: ANXIETY
  8. OXAZEPAM 10MG [Suspect]
     Active Substance: OXAZEPAM
     Indication: RESTLESSNESS
     Dosage: 1/2 - 1 TABLET AT NIGHT
     Route: 048
     Dates: start: 20160211

REACTIONS (1)
  - Completed suicide [Fatal]

NARRATIVE: CASE EVENT DATE: 20160224
